FAERS Safety Report 23191916 (Version 1)
Quarter: 2023Q4

REPORT INFORMATION
  Report Type: Spontaneous
  Country: IT (occurrence: IT)
  Receive Date: 20231116
  Receipt Date: 20231116
  Transmission Date: 20240109
  Serious: Yes (Other)
  Sender: FDA-Public Use
  Company Number: None

PATIENT
  Age: 78 Year
  Sex: Female
  Weight: 48 kg

DRUGS (9)
  1. CISPLATIN [Suspect]
     Active Substance: CISPLATIN
     Indication: Bladder cancer stage IV
     Dosage: CISPLATINO TEVA* 50MG 100ML
     Dates: start: 20230911
  2. GEMCITABINE HYDROCHLORIDE [Suspect]
     Active Substance: GEMCITABINE HYDROCHLORIDE
     Indication: Bladder cancer stage IV
     Dosage: 1ST CYCLE/ 8TH DAY WITH GEMCITABINE HIKMA* 5FL 1G ADMINISTERED AT A DOSAGE OF 1200 MG IV. IN 30 MIN.
     Route: 042
     Dates: start: 20230911
  3. GRANISETRON [Concomitant]
     Active Substance: GRANISETRON
     Indication: Vomiting
     Dosage: GRANISETRON (PA) ADMINISTERED 3 MG - 1 TIME A WEEK FOR CHEMOTHERAPY: CDDP + GEMCITABINE PROTOCOL SCH
     Dates: start: 20230911
  4. GRANISETRON [Concomitant]
     Active Substance: GRANISETRON
     Indication: Chemotherapy side effect prophylaxis
  5. METOCLOPRAMIDE [Concomitant]
     Active Substance: METOCLOPRAMIDE
     Indication: Nausea
     Dosage: METOCLOPRAMIDE (PA) ADMINISTERED 10 MG - 1 TIME A WEEK FOR CHEMOTHERAPY: CDDP + GEMCITABINE PROTOCOL
     Dates: start: 20230911
  6. DEXAMETHASONE [Concomitant]
     Active Substance: DEXAMETHASONE
     Indication: Chemotherapy side effect prophylaxis
     Dosage: DEXAMETHASONE (PA) ADMINISTERED 8 MG - 1 TIME A WEEK FOR CHEMOTHERAPY: CDDP+ GEMCITABINE PROTOCOL (S
     Dates: start: 20230911
  7. DEXAMETHASONE [Concomitant]
     Active Substance: DEXAMETHASONE
     Indication: Steroid therapy
  8. NORVASC [Concomitant]
     Active Substance: AMLODIPINE BESYLATE
     Indication: Hypertension
     Dosage: 1 DOSAGE FORMS DAILY; NORVASC*28CPR 5MG - 1 TABLET/DAY
     Dates: start: 2023
  9. ESOMEPRAZOLE [Concomitant]
     Active Substance: ESOMEPRAZOLE
     Indication: Gastrooesophageal reflux disease
     Dosage: 1 DOSAGE FORMS DAILY; LUCEN*28CPR GASTR 40MG - 1 TABLET/DAY
     Dates: start: 2023

REACTIONS (4)
  - Cystitis haemorrhagic [Not Recovered/Not Resolved]
  - Anaemia [Not Recovered/Not Resolved]
  - Urinary tract infection [Not Recovered/Not Resolved]
  - Dysuria [Not Recovered/Not Resolved]

NARRATIVE: CASE EVENT DATE: 20231001
